FAERS Safety Report 22021427 (Version 1)
Quarter: 2023Q1

REPORT INFORMATION
  Report Type: Spontaneous
  Country: CN (occurrence: None)
  Receive Date: 20230222
  Receipt Date: 20230222
  Transmission Date: 20230418
  Serious: Yes (Other)
  Sender: FDA-Public Use
  Company Number: CN-ROCHE-3290754

PATIENT
  Age: 59 Year
  Sex: Female
  Weight: 62 kg

DRUGS (19)
  1. HERCEPTIN [Suspect]
     Active Substance: TRASTUZUMAB
     Indication: Breast cancer
     Route: 041
  2. HERCEPTIN [Suspect]
     Active Substance: TRASTUZUMAB
     Dosage: TCBHP FOR 5 CYCLES
     Route: 041
     Dates: start: 20220116
  3. HERCEPTIN [Suspect]
     Active Substance: TRASTUZUMAB
     Dosage: TCBHP FOR 6TH CYCLE
     Route: 041
     Dates: start: 20220512
  4. HERCEPTIN [Suspect]
     Active Substance: TRASTUZUMAB
     Route: 041
     Dates: start: 20221021
  5. PERJETA [Suspect]
     Active Substance: PERTUZUMAB
     Indication: Breast cancer
     Dosage: TCBHP FOR 5 CYCLES
     Route: 065
     Dates: start: 20220116
  6. PERJETA [Suspect]
     Active Substance: PERTUZUMAB
     Dosage: TCBHP FOR 6TH CYCLE
     Route: 065
     Dates: start: 20220512
  7. CYCLOPHOSPHAMIDE [Concomitant]
     Active Substance: CYCLOPHOSPHAMIDE
     Indication: Breast cancer
     Route: 042
     Dates: start: 20190903
  8. EPIRUBICIN [Concomitant]
     Active Substance: EPIRUBICIN
     Indication: Breast cancer
     Dosage: 75MG AND THEN 70MG, ON DAY 1 AND DAY 2
     Route: 041
     Dates: start: 20190903
  9. FLUOROURACIL [Concomitant]
     Active Substance: FLUOROURACIL
     Indication: Breast cancer
     Route: 042
     Dates: start: 20190903
  10. DOCETAXEL [Concomitant]
     Active Substance: DOCETAXEL
     Indication: Breast cancer
     Route: 041
  11. ANASTROZOLE [Concomitant]
     Active Substance: ANASTROZOLE
  12. CAPECITABINE [Concomitant]
     Active Substance: CAPECITABINE
     Indication: Breast cancer
     Dosage: NOT ROCHE DRUG
     Route: 048
     Dates: end: 202201
  13. PYROTINIB [Concomitant]
     Active Substance: PYROTINIB
     Indication: Breast cancer
     Route: 048
     Dates: end: 202201
  14. CARBOPLATIN [Concomitant]
     Active Substance: CARBOPLATIN
     Indication: Breast cancer
     Route: 041
     Dates: start: 20220116
  15. PACLITAXEL [Concomitant]
     Active Substance: PACLITAXEL
     Indication: Breast cancer
     Route: 041
     Dates: start: 20220116
  16. FULVESTRANT [Concomitant]
     Active Substance: FULVESTRANT
     Indication: Breast cancer
  17. ABEMACICLIB [Concomitant]
     Active Substance: ABEMACICLIB
     Indication: Breast cancer
  18. VINORELBINE [Concomitant]
     Active Substance: VINORELBINE TARTRATE
     Indication: Breast cancer
     Dates: start: 20221021
  19. ERIBULIN [Concomitant]
     Active Substance: ERIBULIN
     Indication: Breast cancer
     Dosage: 27-DEC-2022 AND 17-JAN-2023

REACTIONS (1)
  - Myelosuppression [Recovering/Resolving]
